FAERS Safety Report 5993331-5 (Version None)
Quarter: 2008Q4

REPORT INFORMATION
  Report Type: 
  Country: None (occurrence: None)
  Receive Date: 20081210
  Receipt Date: 20081210
  Transmission Date: 20090506
  Serious: Yes (Other)
  Sender: FDA-Public Use
  Company Number: None

PATIENT
  Age: 58 Year
  Sex: Male
  Weight: 90.7194 kg

DRUGS (1)
  1. VYTORIN [Suspect]

REACTIONS (4)
  - EPISTAXIS [None]
  - MUSCLE INJURY [None]
  - MYOCARDIAL INFARCTION [None]
  - SKELETAL INJURY [None]
